FAERS Safety Report 11077828 (Version 1)
Quarter: 2015Q2

REPORT INFORMATION
  Report Type: Spontaneous
  Country: US (occurrence: US)
  Receive Date: 20150430
  Receipt Date: 20150430
  Transmission Date: 20150821
  Serious: No
  Sender: FDA-Public Use
  Company Number: US-ASTRAZENECA-2015SE40472

PATIENT
  Age: 55 Year
  Sex: Female
  Weight: 81 kg

DRUGS (4)
  1. NEXIUM 24HR [Suspect]
     Active Substance: ESOMEPRAZOLE MAGNESIUM
     Route: 048
     Dates: start: 201504
  2. ANTIFUNGAL [Concomitant]
     Active Substance: MICONAZOLE NITRATE\TERBINAFINE HYDROCHLORIDE
     Indication: VULVOVAGINAL INJURY
  3. SOTALOL. [Concomitant]
     Active Substance: SOTALOL
     Indication: HEART RATE ABNORMAL
  4. ALBUTEROL. [Concomitant]
     Active Substance: ALBUTEROL
     Indication: ASTHMA
     Dosage: UNK, AS NEEDED

REACTIONS (3)
  - Abdominal pain upper [Not Recovered/Not Resolved]
  - Dyspepsia [Not Recovered/Not Resolved]
  - Contraindicated drug administered [Unknown]

NARRATIVE: CASE EVENT DATE: 20150417
